FAERS Safety Report 9733410 (Version 2)
Quarter: 2014Q1

REPORT INFORMATION
  Report Type: Spontaneous
  Country: IT (occurrence: IT)
  Receive Date: 20131205
  Receipt Date: 20140128
  Transmission Date: 20141002
  Serious: Yes (Other)
  Sender: FDA-Public Use
  Company Number: IT-ACTAVIS-2013-22222

PATIENT
  Age: 59 Year
  Sex: Male

DRUGS (4)
  1. IBUPROFEN [Suspect]
     Indication: OROPHARYNGEAL PAIN
     Dosage: 1 DOSAGE UNIT, PRN
     Route: 048
     Dates: start: 20131101, end: 20131105
  2. BRONCHENOLO [Suspect]
     Indication: OROPHARYNGEAL PAIN
     Dosage: 7.5 MG, PRN
     Route: 048
     Dates: start: 20131101, end: 20131105
  3. DEXTROMETHORPHAN HYDROBROMIDE [Suspect]
     Indication: OROPHARYNGEAL PAIN
     Dosage: 1.2 MG + 20 MG LOZENGES, PRN
     Route: 048
     Dates: start: 20131101, end: 20131105
  4. NORVASC [Concomitant]
     Indication: PRODUCT USED FOR UNKNOWN INDICATION
     Dosage: 5 MG, 1 POSOLOGIC UNIT
     Route: 048

REACTIONS (2)
  - Angioedema [Recovering/Resolving]
  - Erythema [Recovering/Resolving]
